FAERS Safety Report 8451724-0 (Version None)
Quarter: 2012Q2

REPORT INFORMATION
  Report Type: 
  Country: None (occurrence: None)
  Receive Date: 20120620
  Receipt Date: 20120314
  Transmission Date: 20120825
  Serious: No
  Sender: FDA-Public Use
  Company Number: US-VERTEX PHARMACEUTICALS INC.-AE-2012-003716

PATIENT
  Sex: Male
  Weight: 106.69 kg

DRUGS (4)
  1. INCIVEK [Suspect]
     Indication: HEPATITIS C
     Route: 048
     Dates: start: 20120203
  2. RIBAVIRIN [Concomitant]
     Indication: HEPATITIS C
     Route: 048
     Dates: start: 20120203
  3. PEGASYS [Concomitant]
     Indication: HEPATITIS C
     Route: 058
     Dates: start: 20120203
  4. IBUPROFEN [Concomitant]
     Indication: PAIN
     Route: 048

REACTIONS (5)
  - DIZZINESS [None]
  - HAEMOGLOBIN DECREASED [None]
  - CHILLS [None]
  - DIARRHOEA [None]
  - ANORECTAL DISCOMFORT [None]
